FAERS Safety Report 8458372-7 (Version None)
Quarter: 2012Q2

REPORT INFORMATION
  Report Type: 
  Country: None (occurrence: None)
  Receive Date: 20120615
  Receipt Date: 20120524
  Transmission Date: 20120825
  Serious: Yes (Disabling, Other)
  Sender: FDA-Public Use
  Company Number: 2012P1032633

PATIENT
  Age: 43 Year
  Sex: Female
  Weight: 108.8633 kg

DRUGS (13)
  1. CORTEF [Concomitant]
  2. PHENERGAN HCL [Concomitant]
  3. OMEPRAZOLE [Concomitant]
  4. ACETAMINOPHEN, BUTALBITAL, AND CAFFEINE [Concomitant]
  5. MYLANTA [Concomitant]
  6. GEODON [Concomitant]
  7. HYDROCHLOROTHIAZIDE [Concomitant]
  8. XANAX [Concomitant]
  9. ACETAMINOPHEN [Concomitant]
  10. KLOR-CON [Concomitant]
  11. XALATAN [Concomitant]
  12. DICYCLOMINE HCL [Suspect]
     Indication: GASTROINTESTINAL PAIN
     Dosage: TID, PO
     Route: 048
     Dates: start: 19970101
  13. BETOPTIC S EYE DROPS [Concomitant]

REACTIONS (11)
  - RETINAL DETACHMENT [None]
  - MIGRAINE [None]
  - BLINDNESS UNILATERAL [None]
  - ADRENAL INSUFFICIENCY [None]
  - GASTRIC DISORDER [None]
  - FIBROMYALGIA [None]
  - CATARACT [None]
  - COELIAC DISEASE [None]
  - PANIC ATTACK [None]
  - ABDOMINAL PAIN [None]
  - VOMITING [None]
